FAERS Safety Report 13207370 (Version 1)
Quarter: 2017Q1

REPORT INFORMATION
  Report Type: Spontaneous
  Country: US (occurrence: US)
  Receive Date: 20170208
  Receipt Date: 20170208
  Transmission Date: 20170428
  Serious: Yes (Hospitalization)
  Sender: FDA-Public Use
  Company Number: None

PATIENT
  Age: 69 Year
  Sex: Female

DRUGS (6)
  1. WARFARIN [Concomitant]
     Active Substance: WARFARIN
  2. REVLIMID [Suspect]
     Active Substance: LENALIDOMIDE
     Indication: PLASMA CELL MYELOMA
     Dosage: 10 MG DAILY X 21 DAYS/28DAY ORAL
     Route: 048
     Dates: start: 201407
  3. MULTIVITAMIN [Concomitant]
     Active Substance: VITAMINS
  4. LENALIDOMIDE [Concomitant]
     Active Substance: LENALIDOMIDE
  5. VENTOLIN [Concomitant]
     Active Substance: ALBUTEROL SULFATE
  6. ACYCLOVIR. [Concomitant]
     Active Substance: ACYCLOVIR

REACTIONS (1)
  - Pneumonia [None]

NARRATIVE: CASE EVENT DATE: 20170126
